FAERS Safety Report 5598294-2 (Version None)
Quarter: 2008Q1

REPORT INFORMATION
  Report Type: 
  Country: None (occurrence: None)
  Receive Date: 20080122
  Receipt Date: 20080116
  Transmission Date: 20080703
  Serious: Yes (Death, Other)
  Sender: FDA-Public Use
  Company Number: GB-AVENTIS-200615811EU

PATIENT
  Age: 81 Year
  Sex: Female

DRUGS (6)
  1. CLEXANE [Suspect]
     Indication: PROPHYLAXIS
     Route: 058
     Dates: start: 20060829, end: 20060911
  2. FUROSEMIDE [Concomitant]
     Dates: start: 20060829
  3. ASPIRIN [Concomitant]
     Dates: start: 20060829
  4. ATENOLOL [Concomitant]
     Dates: start: 20060829
  5. ATORVASTATIN [Concomitant]
     Dates: start: 20060829
  6. RAMIPRIL [Concomitant]
     Dates: start: 20060829

REACTIONS (3)
  - BRONCHOPNEUMONIA [None]
  - HEPARIN-INDUCED THROMBOCYTOPENIA [None]
  - PERIPHERAL ISCHAEMIA [None]
